FAERS Safety Report 6854888-5 (Version None)
Quarter: 2010Q3

REPORT INFORMATION
  Report Type: 
  Country: None (occurrence: None)
  Receive Date: 20100717
  Receipt Date: 20080125
  Transmission Date: 20110219
  Serious: No
  Sender: FDA-Public Use
  Company Number: US-PFIZER INC-2008004734

PATIENT
  Sex: Male
  Weight: 136.36 kg

DRUGS (13)
  1. CHANTIX [Suspect]
     Indication: SMOKING CESSATION THERAPY
     Dates: start: 20080108
  2. CLONIDINE [Concomitant]
  3. CLONAZEPAM [Concomitant]
  4. DYAZIDE [Concomitant]
  5. METOPROLOL [Concomitant]
  6. FAMOTIDINE [Concomitant]
  7. LISINOPRIL [Concomitant]
  8. HYDROCODONE [Concomitant]
  9. NABUMETONE [Concomitant]
  10. ASPIRIN [Concomitant]
  11. TRICOR [Concomitant]
     Indication: BLOOD CHOLESTEROL INCREASED
  12. ACYCLOVIR [Concomitant]
  13. LEVITRA [Concomitant]

REACTIONS (5)
  - ABNORMAL DREAMS [None]
  - DRUG INEFFECTIVE [None]
  - FLATULENCE [None]
  - PALPITATIONS [None]
  - UNEVALUABLE EVENT [None]
